FAERS Safety Report 13376068 (Version 1)
Quarter: 2017Q1

REPORT INFORMATION
  Report Type: Spontaneous
  Country: US (occurrence: US)
  Receive Date: 20170328
  Receipt Date: 20170328
  Transmission Date: 20170429
  Serious: No
  Sender: FDA-Public Use
  Company Number: US-ASTELLAS-2016US033687

PATIENT
  Sex: Female

DRUGS (1)
  1. PROTOPIC [Suspect]
     Active Substance: TACROLIMUS
     Indication: ECZEMA EYELIDS
     Dosage: UNK UNK, UNKNOWN FREQ.
     Route: 061

REACTIONS (1)
  - Application site pain [Recovered/Resolved]
